FAERS Safety Report 9253181 (Version 1)
Quarter: 2013Q2

REPORT INFORMATION
  Report Type: Spontaneous
  Country: CH (occurrence: CH)
  Receive Date: 20130424
  Receipt Date: 20130424
  Transmission Date: 20140414
  Serious: Yes (Other)
  Sender: FDA-Public Use
  Company Number: CH-B.I. PHARMACEUTICALS,INC./RIDGEFIELD-2013-AP-00269SI

PATIENT
  Sex: Female
  Weight: 70 kg

DRUGS (12)
  1. PRADAXA [Suspect]
     Indication: AMAUROSIS
     Dosage: 300 MG
     Dates: start: 20130220, end: 20130302
  2. COAPROVEL [Concomitant]
     Dosage: 1 IN THE MORNING
  3. TENORMIN SUBMITE [Concomitant]
     Dosage: 25 MG
  4. ASPIRIN CARDIO 100 [Concomitant]
     Dosage: 100 MG
  5. LEXOTANIL [Concomitant]
     Dosage: 0.75 MG
  6. DAFALGAN [Concomitant]
     Dosage: ^ON RESERVE^
  7. DUSPATALIN RETARD [Concomitant]
     Dosage: 200 MG
  8. AMIODARONE [Concomitant]
     Dosage: 100 MG
  9. XARELTO [Concomitant]
     Dosage: 15 MG
  10. CALCIMAGON [Concomitant]
     Dosage: 1 IN THE MORNING AND 1 IN THE EVENING
  11. CRESTOR [Concomitant]
     Dosage: 10 MG
  12. LIVIAL [Concomitant]
     Dosage: 1.25 MG

REACTIONS (1)
  - Fluid retention [Recovered/Resolved]
